FAERS Safety Report 20583875 (Version 7)
Quarter: 2024Q4

REPORT INFORMATION
  Report Type: Spontaneous
  Country: US (occurrence: US)
  Receive Date: 20220311
  Receipt Date: 20241001
  Transmission Date: 20250115
  Serious: Yes (Hospitalization, Other)
  Sender: INCYTE
  Company Number: US-INCYTE CORPORATION-2022IN002228

PATIENT

DRUGS (7)
  1. JAKAFI [Suspect]
     Active Substance: RUXOLITINIB
     Indication: Essential thrombocythaemia
     Dosage: 10 MILLIGRAM, BID
     Route: 048
     Dates: start: 20220209
  2. JAKAFI [Suspect]
     Active Substance: RUXOLITINIB
     Dosage: 5 MG, 1 TABLET IN THE MORNING AND 2 TABLETS IN THE EVENING
     Route: 048
     Dates: start: 202202
  3. JAKAFI [Suspect]
     Active Substance: RUXOLITINIB
     Dosage: 5 MILLIGRAM, BID
     Route: 048
     Dates: start: 20220210
  4. JAKAFI [Suspect]
     Active Substance: RUXOLITINIB
     Dosage: UNK (DOSE INCREASED)
     Route: 065
  5. JAKAFI [Suspect]
     Active Substance: RUXOLITINIB
     Dosage: 10 MILLIGRAM, BID
     Route: 048
     Dates: start: 202202
  6. ZOFRAN [Suspect]
     Active Substance: ONDANSETRON HYDROCHLORIDE
     Indication: Product used for unknown indication
     Dosage: UNK
     Route: 065
  7. KETOCONAZOLE [Concomitant]
     Active Substance: KETOCONAZOLE
     Indication: Product used for unknown indication
     Route: 065

REACTIONS (22)
  - Fall [Unknown]
  - Dizziness [Unknown]
  - Syncope [Unknown]
  - Migraine [Unknown]
  - Lymphadenopathy [Unknown]
  - Bradyphrenia [Unknown]
  - Hyperhidrosis [Unknown]
  - Arthralgia [Unknown]
  - Bone pain [Unknown]
  - Confusional state [Unknown]
  - Thinking abnormal [Unknown]
  - Amnesia [Unknown]
  - Chromaturia [Unknown]
  - Speech disorder [Unknown]
  - Myalgia [Unknown]
  - Muscle spasms [Unknown]
  - Nausea [Unknown]
  - Mass [Unknown]
  - Platelet count increased [Unknown]
  - Constipation [Unknown]
  - Hot flush [Unknown]
  - Off label use [Unknown]

NARRATIVE: CASE EVENT DATE: 20220101
